FAERS Safety Report 9122833 (Version 1)
Quarter: 2013Q1

REPORT INFORMATION
  Report Type: Spontaneous
  Country: US (occurrence: US)
  Receive Date: 20130227
  Receipt Date: 20130227
  Transmission Date: 20140127
  Serious: No
  Sender: FDA-Public Use
  Company Number: US-GLAXOSMITHKLINE-A0961219A

PATIENT
  Age: 62 Year
  Sex: Female

DRUGS (7)
  1. VALTREX [Suspect]
     Indication: HERPES ZOSTER
     Dosage: 1G PER DAY
     Route: 048
     Dates: start: 2004
  2. SINGULAIR [Suspect]
     Route: 065
  3. ATARAX [Concomitant]
  4. BENADRYL [Concomitant]
  5. LEVOTHYROXINE [Concomitant]
  6. CETIRIZINE [Concomitant]
  7. OXYGEN [Concomitant]

REACTIONS (2)
  - Pruritus [Not Recovered/Not Resolved]
  - Oxygen saturation decreased [Not Recovered/Not Resolved]
